FAERS Safety Report 10009420 (Version 1)
Quarter: 2014Q1

REPORT INFORMATION
  Report Type: Spontaneous
  Country: BR (occurrence: BR)
  Receive Date: 20140313
  Receipt Date: 20140313
  Transmission Date: 20141002
  Serious: Yes (Other)
  Sender: FDA-Public Use
  Company Number: PHHY2014BR030458

PATIENT
  Sex: Male

DRUGS (1)
  1. CODATEN [Suspect]
     Dosage: 50 MG, UNK
     Dates: start: 20140308

REACTIONS (6)
  - Blister [Unknown]
  - Swelling face [Unknown]
  - Abdominal distension [Unknown]
  - Feeling abnormal [Unknown]
  - Vomiting [Unknown]
  - Abdominal pain upper [Unknown]
